FAERS Safety Report 9752551 (Version 1)
Quarter: 2013Q4

REPORT INFORMATION
  Report Type: Report from Study
  Country: CA (occurrence: CA)
  Receive Date: 20131213
  Receipt Date: 20131213
  Transmission Date: 20140711
  Serious: Yes (Other)
  Sender: FDA-Public Use
  Company Number: CA-JNJFOC-20131207115

PATIENT
  Age: 63 Year
  Sex: Male
  Weight: 76.4 kg

DRUGS (2)
  1. REMICADE [Suspect]
     Indication: COLITIS
     Route: 042
     Dates: start: 20131207, end: 20131207
  2. REMICADE [Suspect]
     Indication: COLITIS
     Route: 042
     Dates: start: 20130706

REACTIONS (2)
  - Heart rate increased [Not Recovered/Not Resolved]
  - Infusion related reaction [Not Recovered/Not Resolved]
